FAERS Safety Report 6585542-5 (Version None)
Quarter: 2010Q1

REPORT INFORMATION
  Report Type: 
  Country: None (occurrence: None)
  Receive Date: 20100217
  Receipt Date: 20100205
  Transmission Date: 20100710
  Serious: Yes (Hospitalization)
  Sender: FDA-Public Use
  Company Number: FR-GILEAD-2010-0026888

PATIENT
  Sex: Female

DRUGS (4)
  1. TRUVADA [Suspect]
     Route: 048
     Dates: start: 20070301
  2. REYATAZ [Suspect]
     Route: 048
     Dates: start: 20070301
  3. PRAVASTATINE BIOGARAN [Suspect]
     Route: 048
     Dates: start: 20080101, end: 20091201
  4. IBUPROFEN [Suspect]
     Route: 048
     Dates: end: 20090301

REACTIONS (3)
  - CHRONIC HEPATITIS [None]
  - CYTOLYTIC HEPATITIS [None]
  - HEPATIC CIRRHOSIS [None]
